FAERS Safety Report 6788452-3 (Version None)
Quarter: 2010Q2

REPORT INFORMATION
  Report Type: 
  Country: None (occurrence: None)
  Receive Date: 20100623
  Receipt Date: 20080307
  Transmission Date: 20101027
  Serious: No
  Sender: FDA-Public Use
  Company Number: US-PFIZER INC-2008021811

PATIENT
  Age: 30 Year
  Sex: Female
  Weight: 68.2 kg

DRUGS (3)
  1. GEODON [Suspect]
     Indication: SCHIZOPHRENIA
     Dates: start: 20030701
  2. COGENTIN [Concomitant]
  3. ANALGESICS [Concomitant]
     Indication: PAIN

REACTIONS (5)
  - DEPRESSION [None]
  - FATIGUE [None]
  - FIBROMYALGIA [None]
  - MYALGIA [None]
  - WEIGHT DECREASED [None]
